FAERS Safety Report 6986532-0 (Version None)
Quarter: 2010Q3

REPORT INFORMATION
  Report Type: 
  Country: None (occurrence: None)
  Receive Date: 20100915
  Receipt Date: 20090717
  Transmission Date: 20110219
  Serious: No
  Sender: FDA-Public Use
  Company Number: US-WYE-H10207209

PATIENT
  Sex: Female
  Weight: 59.47 kg

DRUGS (5)
  1. PRISTIQ [Suspect]
     Indication: DEPRESSION
     Route: 048
     Dates: start: 20090715
  2. PRISTIQ [Suspect]
     Indication: OBSESSIVE-COMPULSIVE DISORDER
  3. LAMICTAL [Concomitant]
  4. KLONOPIN [Concomitant]
  5. AMBIEN CR [Concomitant]

REACTIONS (1)
  - TREMOR [None]
